FAERS Safety Report 17546433 (Version 1)
Quarter: 2020Q1

REPORT INFORMATION
  Report Type: Spontaneous
  Country: CA (occurrence: CA)
  Receive Date: 20200316
  Receipt Date: 20200316
  Transmission Date: 20200409
  Serious: Yes (Other)
  Sender: FDA-Public Use
  Company Number: CA-ICU MEDICAL, INC.-ICU2020CA00009

PATIENT

DRUGS (8)
  1. FENTANYL CITRATE. [Suspect]
     Active Substance: FENTANYL CITRATE
     Indication: INDUCTION OF ANAESTHESIA
     Dosage: 50 MICROGRAM
     Route: 065
  2. PROPOFOL. [Suspect]
     Active Substance: PROPOFOL
     Indication: INDUCTION OF ANAESTHESIA
     Dosage: 100 MILLIGRAM
     Route: 065
  3. LOSARTAN. [Concomitant]
     Active Substance: LOSARTAN
     Indication: GENE MUTATION
     Dosage: 100 MILLIGRAM, QD
     Route: 065
  4. SODIUM CHLORIDE INJECTION [Suspect]
     Active Substance: SODIUM CHLORIDE
     Indication: ANAESTHESIA PROCEDURE
     Dosage: 500 MILLILITER
     Route: 042
  5. ATENOLOL. [Concomitant]
     Active Substance: ATENOLOL
     Indication: GENE MUTATION
     Dosage: 50 MILLIGRAM, QD
     Route: 065
  6. LIDOCAINE. [Suspect]
     Active Substance: LIDOCAINE
     Indication: INDUCTION OF ANAESTHESIA
     Dosage: 40 MILLIGRAM
     Route: 061
  7. ROCURONIUM BROMIDE. [Suspect]
     Active Substance: ROCURONIUM BROMIDE
     Indication: ANAESTHESIA PROCEDURE
     Dosage: 35 MILLIGRAM
     Route: 065
  8. SEVOFLURANE. [Suspect]
     Active Substance: SEVOFLURANE
     Indication: MAINTENANCE OF ANAESTHESIA
     Dosage: UNK
     Route: 065

REACTIONS (2)
  - Pulse absent [Recovered/Resolved]
  - Hypotension [Recovered/Resolved]
